FAERS Safety Report 4928902-8 (Version None)
Quarter: 2006Q1

REPORT INFORMATION
  Report Type: 
  Country: None (occurrence: None)
  Receive Date: 20060301
  Receipt Date: 20060222
  Transmission Date: 20060701
  Serious: Yes (Hospitalization)
  Sender: FDA-Public Use
  Company Number: US-JNJFOC-20051200572

PATIENT
  Sex: Female
  Weight: 70.31 kg

DRUGS (13)
  1. DURAGESIC-100 [Suspect]
     Route: 062
  2. IMURAN [Concomitant]
     Indication: RHEUMATOID ARTHRITIS
     Route: 048
  3. CENESTIN [Concomitant]
     Route: 048
  4. METHOTREXATE [Concomitant]
     Indication: RHEUMATOID ARTHRITIS
     Route: 048
  5. PROSORBA [Concomitant]
     Route: 042
  6. FOLIC ACID [Concomitant]
     Route: 048
  7. LEUCOVORIN CALCIUM [Concomitant]
     Route: 048
  8. TOPAMAX [Concomitant]
     Indication: HEADACHE
     Route: 048
  9. REGLAN [Concomitant]
     Indication: NAUSEA
     Route: 048
  10. NEXIUM [Concomitant]
     Route: 048
  11. NORVASC [Concomitant]
     Indication: HYPERTENSION
     Route: 048
  12. AZT [Concomitant]
     Route: 048
  13. REMICADE [Concomitant]
     Indication: RHEUMATOID ARTHRITIS
     Route: 042

REACTIONS (2)
  - RENAL FAILURE [None]
  - SEPSIS [None]
